FAERS Safety Report 9731471 (Version 1)
Quarter: 2013Q4

REPORT INFORMATION
  Report Type: Spontaneous
  Country: US (occurrence: US)
  Receive Date: 20131205
  Receipt Date: 20131205
  Transmission Date: 20140711
  Serious: Yes (Other)
  Sender: FDA-Public Use
  Company Number: US-ASTRAZENECA-2013SE87804

PATIENT
  Age: 62 Year
  Sex: Female
  Weight: 63.5 kg

DRUGS (7)
  1. PULMICORT FLEXHALER [Suspect]
     Indication: ASTHMA
     Dosage: 180 MCG, 1 PUFF, DAILY
     Route: 055
     Dates: start: 2013
  2. NEXIUM [Suspect]
     Indication: REFLUX GASTRITIS
     Route: 048
  3. NEXIUM [Suspect]
     Indication: REFLUX GASTRITIS
     Route: 048
     Dates: start: 2007
  4. METOPROLOL SUCCINATE [Suspect]
     Indication: HEART RATE INCREASED
     Dosage: GENERIC
     Route: 065
     Dates: start: 2004
  5. COUMADIN [Concomitant]
     Indication: ATRIAL FIBRILLATION
     Route: 048
     Dates: start: 2004
  6. CARDIZEM [Concomitant]
     Route: 048
     Dates: start: 2004
  7. BENOCARD [Concomitant]

REACTIONS (7)
  - Heart valve incompetence [Unknown]
  - Nasopharyngitis [Recovering/Resolving]
  - Cough [Recovering/Resolving]
  - Throat irritation [Unknown]
  - Atrial fibrillation [Unknown]
  - Off label use [Unknown]
  - Off label use [Unknown]
